FAERS Safety Report 20938706 (Version 1)
Quarter: 2022Q2

REPORT INFORMATION
  Report Type: Spontaneous
  Country: US (occurrence: None)
  Receive Date: 20220608
  Receipt Date: 20220608
  Transmission Date: 20220720
  Serious: Yes (Death)
  Sender: FDA-Public Use
  Company Number: None

PATIENT
  Age: 78 Year
  Sex: Male

DRUGS (1)
  1. OPSUMIT [Suspect]
     Active Substance: MACITENTAN
     Indication: Prostate cancer
     Dosage: FREQUENCY : DAILY;?
     Route: 048
     Dates: start: 20220414

REACTIONS (4)
  - Myelofibrosis [None]
  - Pulmonary hypertension [None]
  - Cardiac failure [None]
  - Essential thrombocythaemia [None]

NARRATIVE: CASE EVENT DATE: 20220605
